FAERS Safety Report 14113947 (Version 2)
Quarter: 2017Q4

REPORT INFORMATION
  Report Type: Report from Study
  Country: US (occurrence: US)
  Receive Date: 20171023
  Receipt Date: 20171026
  Transmission Date: 20180321
  Serious: Yes (Death)
  Sender: FDA-Public Use
  Company Number: US-ROCHE-2012844

PATIENT
  Sex: Male

DRUGS (2)
  1. TECENTRIQ [Suspect]
     Active Substance: ATEZOLIZUMAB
     Indication: BLADDER CANCER
     Route: 065
     Dates: start: 20170425
  2. TECENTRIQ [Suspect]
     Active Substance: ATEZOLIZUMAB
     Indication: METASTASES TO LUNG

REACTIONS (1)
  - Death [Fatal]
